FAERS Safety Report 7229711-X (Version None)
Quarter: 2011Q1

REPORT INFORMATION
  Report Type: 
  Country: None (occurrence: None)
  Receive Date: 20110117
  Receipt Date: 20110110
  Transmission Date: 20110831
  Serious: Yes (Hospitalization)
  Sender: FDA-Public Use
  Company Number: FR-BAXTER-2011BH000615

PATIENT
  Age: 83 Year
  Sex: Female

DRUGS (4)
  1. ZOPHREN [Concomitant]
     Indication: PREMEDICATION
     Route: 065
     Dates: start: 20101214, end: 20101214
  2. TAXOTERE [Suspect]
     Indication: BREAST CANCER
     Route: 042
     Dates: start: 20101214, end: 20101214
  3. MEDROL [Concomitant]
     Indication: PREMEDICATION
     Route: 065
     Dates: start: 20101214, end: 20101214
  4. CYCLOPHOSPHAMIDE [Suspect]
     Indication: BREAST CANCER
     Route: 042
     Dates: start: 20101214, end: 20101214

REACTIONS (1)
  - DYSPNOEA [None]
